FAERS Safety Report 13979279 (Version 2)
Quarter: 2018Q3

REPORT INFORMATION
  Report Type: Spontaneous
  Country: US (occurrence: US)
  Receive Date: 20170914
  Receipt Date: 20180913
  Transmission Date: 20181010
  Serious: No
  Sender: FDA-Public Use
  Company Number: US-ASTELLAS-2017US023810

PATIENT
  Sex: Male

DRUGS (1)
  1. XTANDI [Suspect]
     Active Substance: ENZALUTAMIDE
     Indication: PROSTATE CANCER
     Route: 048

REACTIONS (8)
  - Product contamination [Unknown]
  - Product physical issue [Unknown]
  - Oral discomfort [Unknown]
  - Product odour abnormal [Unknown]
  - Product taste abnormal [Unknown]
  - Poor quality drug administered [Unknown]
  - Throat irritation [Recovering/Resolving]
  - Anxiety [Unknown]
